FAERS Safety Report 20509901 (Version 2)
Quarter: 2022Q1

REPORT INFORMATION
  Report Type: Spontaneous
  Country: US (occurrence: US)
  Receive Date: 20220224
  Receipt Date: 20220322
  Transmission Date: 20220423
  Serious: Yes (Other)
  Sender: FDA-Public Use
  Company Number: US-JNJFOC-20220244612

PATIENT
  Age: 67 Year
  Sex: Male
  Weight: 60.1 kg

DRUGS (17)
  1. DARZALEX [Suspect]
     Active Substance: DARATUMUMAB
     Indication: Plasma cell myeloma
     Route: 065
     Dates: start: 20220106
  2. ACYCLOVIR [Concomitant]
     Active Substance: ACYCLOVIR
     Dosage: TAKE 200 MG BY MOUTH 2 TIMES DAILY
  3. ALLOPURINOL [Concomitant]
     Active Substance: ALLOPURINOL
  4. ASPIRIN [Concomitant]
     Active Substance: ASPIRIN
     Dosage: ASPIRIN 81 MG TABLET,DELAYED RELEASE
  5. ATORVASTATIN [Concomitant]
     Active Substance: ATORVASTATIN
     Dosage: 1 EVERY 24 HOURS BY ORAL ROUTE.?ATORVASTATIN 80 MG TABLET
  6. BUMETANIDE [Concomitant]
     Active Substance: BUMETANIDE
     Dosage: 1 TABLET EVERY 24 HOURS BY ORAL ROUTE.?DAILY.
  7. CALCIUM CARBONATE\CHOLECALCIFEROL [Concomitant]
     Active Substance: CALCIUM CARBONATE\CHOLECALCIFEROL
     Dosage: CALCIUM 600 + D(3) 600 MG-5 MCG (200 UNIT)?CAPSULE
  8. CARVEDILOL [Concomitant]
     Active Substance: CARVEDILOL
     Dosage: 6.25 MG BY MOUTH 2 TIMES DAILY
  9. CYANOCOBALAMIN [Concomitant]
     Active Substance: CYANOCOBALAMIN
     Dosage: VITAMIN B-12 ER 2,000 MCG TABLET,EXTENDED?RELEASE
  10. DONEPEZIL [Concomitant]
     Active Substance: DONEPEZIL
     Dosage: DONEPEZIL 23 MG TABLET?1 TB EVERY 24 HOURS BY ORAL ROUTE.
  11. ESCITALOPRAM [Concomitant]
     Active Substance: ESCITALOPRAM OXALATE
     Dosage: TAKE 10 MG BY MOUTH DAILY.
  12. NORCO [Concomitant]
     Active Substance: ACETAMINOPHEN\HYDROCODONE BITARTRATE
     Dosage: TAKE 1 TABLET BY MOUTH EVERY 6 HOURS AS NEEDED?FOR PAIN.
  13. INTERFERON BETA-1A [Concomitant]
     Active Substance: INTERFERON BETA-1A
     Indication: Multiple sclerosis
     Dosage: INJECT INTO THE MUSCLE WEEKLY.
  14. LEVOTHYROXINE [Concomitant]
     Active Substance: LEVOTHYROXINE
     Dosage: TAKE 150 MCG BY MOUTH DAILY.
  15. NITROGLYCERIN [Concomitant]
     Active Substance: NITROGLYCERIN
     Dosage: NITROGLYCERIN 0.4 MG SUBLINGUAL TABLET
  16. POTASSIUM CHLORIDE [Concomitant]
     Active Substance: POTASSIUM CHLORIDE
     Dosage: POTASSIUM CHLORIDE ER 20 MEQ TABLET,EXTENDED?RELEASE?1TAB EVERY 24 HOURS BY ORAL ROUTE.
  17. TICAGRELOR [Concomitant]
     Active Substance: TICAGRELOR
     Dosage: 1 TAB EVERY 12 HOURS BY ORAL ROUTE
     Route: 048

REACTIONS (4)
  - Plasma cell myeloma recurrent [Unknown]
  - Drug ineffective [Unknown]
  - Decreased appetite [Unknown]
  - Insomnia [Unknown]

NARRATIVE: CASE EVENT DATE: 20220101
